FAERS Safety Report 7718935-0 (Version None)
Quarter: 2011Q3

REPORT INFORMATION
  Report Type: 
  Country: None (occurrence: None)
  Receive Date: 20110830
  Receipt Date: 20110817
  Transmission Date: 20111222
  Serious: Yes (Death, Hospitalization)
  Sender: FDA-Public Use
  Company Number: US-GLAXOSMITHKLINE-A0862110A

PATIENT
  Age: 61 Year
  Sex: Male
  Weight: 108.6 kg

DRUGS (1)
  1. AVANDIA [Suspect]
     Indication: DIABETES MELLITUS
     Dates: start: 20020916, end: 20041026

REACTIONS (3)
  - DEATH [None]
  - WEIGHT INCREASED [None]
  - CORONARY ARTERY DISEASE [None]
